FAERS Safety Report 11642890 (Version 6)
Quarter: 2020Q3

REPORT INFORMATION
  Report Type: Other
  Country: CA (occurrence: CA)
  Receive Date: 20151020
  Receipt Date: 20200820
  Transmission Date: 20201102
  Serious: Yes (Other)
  Sender: FDA-Public Use
  Company Number: CA-ROCHE-1648174

PATIENT
  Age: 61 Year
  Sex: Male
  Weight: 95.2 kg

DRUGS (17)
  1. RITUXAN [Suspect]
     Active Substance: RITUXIMAB
     Route: 042
  2. VIT D [Concomitant]
     Active Substance: VITAMIN D NOS
  3. RITUXAN [Suspect]
     Active Substance: RITUXIMAB
     Indication: VASCULITIS
     Dosage: FREQUENCY: DAY 1 AND DAY 15;INITIAL DOSE PROVIDED IN HOSPITAL 17?SEP?2015; SECOND?DOSE 08?OCT?2015;
     Route: 042
     Dates: start: 20150917, end: 2015
  4. PANTOLOC [Concomitant]
     Active Substance: PANTOPRAZOLE SODIUM
  5. MONOCOR [Concomitant]
     Active Substance: BISOPROLOL FUMARATE
  6. NORVASC [Concomitant]
     Active Substance: AMLODIPINE BESYLATE
  7. RITUXAN [Suspect]
     Active Substance: RITUXIMAB
     Route: 042
     Dates: start: 20160707
  8. INSULINE [Concomitant]
     Active Substance: INSULIN NOS
  9. PREDNISONE. [Concomitant]
     Active Substance: PREDNISONE
     Route: 048
  10. DIPHENHYDRAMINE HCL [Concomitant]
     Active Substance: DIPHENHYDRAMINE HYDROCHLORIDE
     Route: 048
     Dates: start: 20160707
  11. ACETAMINOPHEN. [Concomitant]
     Active Substance: ACETAMINOPHEN
     Route: 048
     Dates: start: 20160707, end: 20170126
  12. RISEDRONATE [Concomitant]
     Active Substance: RISEDRONATE SODIUM
  13. ACETAMINOPHEN. [Concomitant]
     Active Substance: ACETAMINOPHEN
     Route: 048
     Dates: start: 20170719
  14. RITUXAN [Suspect]
     Active Substance: RITUXIMAB
     Indication: GRANULOMATOSIS WITH POLYANGIITIS
     Route: 042
     Dates: start: 20190509
  15. LYRICA [Concomitant]
     Active Substance: PREGABALIN
  16. NESINA [Concomitant]
     Active Substance: ALOGLIPTIN BENZOATE
  17. METHYLPREDNISOLONE. [Concomitant]
     Active Substance: METHYLPREDNISOLONE
     Route: 042
     Dates: start: 20160707

REACTIONS (7)
  - Blood pressure increased [Unknown]
  - Intentional product use issue [Unknown]
  - Platelet count decreased [Not Recovered/Not Resolved]
  - Blood pressure systolic abnormal [Unknown]
  - Blood pressure diastolic abnormal [Unknown]
  - Off label use [Unknown]
  - Blood pressure systolic increased [Unknown]

NARRATIVE: CASE EVENT DATE: 20180705
